APPROVED DRUG PRODUCT: STALEVO 75
Active Ingredient: CARBIDOPA; ENTACAPONE; LEVODOPA
Strength: 18.75MG;200MG;75MG
Dosage Form/Route: TABLET;ORAL
Application: N021485 | Product #005 | TE Code: AB
Applicant: ORION PHARMA
Approved: Aug 29, 2008 | RLD: Yes | RS: No | Type: RX